FAERS Safety Report 9351178 (Version 1)
Quarter: 2013Q2

REPORT INFORMATION
  Report Type: Spontaneous
  Country: US (occurrence: US)
  Receive Date: 20130617
  Receipt Date: 20130617
  Transmission Date: 20140414
  Serious: Yes (Hospitalization)
  Sender: FDA-Public Use
  Company Number: US-BAYER-2013-071896

PATIENT
  Age: 30 Year
  Sex: Female
  Weight: 83.9 kg

DRUGS (19)
  1. YASMIN [Suspect]
  2. ZANTAC [Concomitant]
     Dosage: 50 MG, UNK
     Route: 042
     Dates: start: 20061130
  3. ZOFRAN [Concomitant]
     Dosage: 4 MG, UNK
     Route: 042
  4. LABETALOL [Concomitant]
     Dosage: 5 MG, UNK
     Route: 042
     Dates: start: 20061208
  5. BENADRYL [Concomitant]
     Dosage: 25 MG, UNK
     Route: 042
  6. DILAUDID [Concomitant]
     Dosage: 1 MG, UNK
     Route: 042
  7. ANCEF [Concomitant]
     Dosage: 1 GRAM
     Route: 042
     Dates: start: 20070115
  8. EFFEXOR [Concomitant]
     Dosage: 37.5 MG, UNK
  9. LOPRESSOR [Concomitant]
     Dosage: 50 MG, UNK
  10. CLARINEX [DESLORATADINE] [Concomitant]
     Dosage: 5 MG, UNK
     Dates: start: 20070116
  11. ATIVAN [Concomitant]
     Dosage: 0.5 MG, UNK
     Route: 042
     Dates: start: 20070116
  12. PREVACID [Concomitant]
     Dosage: 30 MG, UNK
     Route: 042
     Dates: start: 20070116
  13. MORPHINE [Concomitant]
     Dosage: UNK
     Route: 042
     Dates: start: 20070116
  14. DOCUSATE [Concomitant]
     Dosage: 100 MG, UNK
     Route: 048
     Dates: start: 20070116
  15. LEVAQUIN [Concomitant]
     Dosage: 500 MG, UNK
     Route: 042
  16. TYLOX [Concomitant]
     Route: 048
  17. CIPRO [Concomitant]
     Dosage: 500 MG, UNK
  18. DETROL [Concomitant]
     Dosage: 4 MG, UNK
     Route: 048
     Dates: start: 20070119
  19. FLEXERIL [Concomitant]
     Dosage: 10 MG, UNK

REACTIONS (1)
  - Pulmonary embolism [Recovered/Resolved]
